FAERS Safety Report 6937345-7 (Version None)
Quarter: 2010Q3

REPORT INFORMATION
  Report Type: 
  Country: None (occurrence: None)
  Receive Date: 20100823
  Receipt Date: 20100811
  Transmission Date: 20110219
  Serious: Yes (Life-Threatening, Hospitalization)
  Sender: FDA-Public Use
  Company Number: FR-WYE-H16902710

PATIENT
  Sex: Male

DRUGS (12)
  1. ARTANE [Suspect]
     Dosage: UNKNOWN
     Dates: start: 20100601, end: 20100629
  2. RISPERDAL [Suspect]
     Dosage: UNKNOWN
     Dates: start: 20080101, end: 20100501
  3. RITALIN [Suspect]
     Dosage: UNKNOWN
     Dates: start: 20080101, end: 20100501
  4. RITALIN [Suspect]
     Dosage: UNKNOWN
     Dates: start: 20100621, end: 20100629
  5. NOPRON [Suspect]
     Dosage: UNKNOWN
     Dates: start: 20100628, end: 20100629
  6. TERCIAN [Suspect]
     Dosage: UNKNOWN
     Dates: start: 20100501, end: 20100531
  7. CONCERTA [Suspect]
     Dosage: UNKNOWN
     Dates: start: 20100501, end: 20100531
  8. LEPTICUR [Suspect]
     Dosage: UNKNOWN
     Dates: start: 20100604, end: 20100621
  9. RIVOTRIL [Suspect]
     Dosage: UNKNOWN
     Dates: start: 20100604, end: 20100621
  10. ATARAX [Suspect]
     Dosage: UNKNOWN
     Dates: start: 20100501, end: 20100604
  11. ATARAX [Suspect]
     Dosage: UNKNOWN
     Dates: start: 20100621, end: 20100629
  12. NEULEPTIL [Suspect]
     Dosage: UNKNOWN
     Dates: start: 20100501, end: 20100531

REACTIONS (14)
  - ABNORMAL BEHAVIOUR [None]
  - AGITATION [None]
  - ALTERED STATE OF CONSCIOUSNESS [None]
  - CONDITION AGGRAVATED [None]
  - CYTOLYTIC HEPATITIS [None]
  - DEHYDRATION [None]
  - DRUG TOXICITY [None]
  - DYSKINESIA [None]
  - HAEMODYNAMIC INSTABILITY [None]
  - HYPERTHERMIA [None]
  - RENAL FAILURE ACUTE [None]
  - RESPIRATORY FAILURE [None]
  - RHABDOMYOLYSIS [None]
  - TACHYCARDIA [None]
